FAERS Safety Report 4843841-9 (Version None)
Quarter: 2005Q4

REPORT INFORMATION
  Report Type: 
  Country: None (occurrence: None)
  Receive Date: 20051129
  Receipt Date: 20051117
  Transmission Date: 20060501
  Serious: Yes (Disabling)
  Sender: FDA-Public Use
  Company Number: GXKR2005JP01240

PATIENT
  Age: 46 Year
  Sex: Female

DRUGS (5)
  1. RIFAMPICIN [Suspect]
     Indication: TUBERCULOUS PLEURISY
     Dosage: ORAL
     Route: 048
     Dates: start: 20040301, end: 20040601
  2. ISONIAZID [Suspect]
     Indication: TUBERCULOUS PLEURISY
     Dates: start: 20040301
  3. PYRAZINAMIDE [Suspect]
     Indication: TUBERCULOUS PLEURISY
     Dates: start: 20040301
  4. ETHAMBUTOL [Suspect]
     Indication: TUBERCULOUS PLEURISY
     Dates: start: 20040301
  5. PREDONNE  (PREDNISOLONE) [Concomitant]

REACTIONS (6)
  - CONDITION AGGRAVATED [None]
  - FOCAL GLOMERULOSCLEROSIS [None]
  - HAEMODIALYSIS [None]
  - NEPHROTIC SYNDROME [None]
  - RENAL FAILURE ACUTE [None]
  - THERAPY NON-RESPONDER [None]
